FAERS Safety Report 5933048-6 (Version None)
Quarter: 2008Q4

REPORT INFORMATION
  Report Type: 
  Country: None (occurrence: None)
  Receive Date: 20081028
  Receipt Date: 20081015
  Transmission Date: 20090506
  Serious: Yes (Other)
  Sender: FDA-Public Use
  Company Number: US-ELI_LILLY_AND_COMPANY-US200810003647

PATIENT
  Sex: Female

DRUGS (3)
  1. FORTEO [Suspect]
     Indication: OSTEOPOROSIS
     Dates: start: 20060901, end: 20080901
  2. PROSOM [Concomitant]
  3. LIPITOR [Concomitant]

REACTIONS (2)
  - MALIGNANT MELANOMA [None]
  - SCAR [None]
